FAERS Safety Report 9221455 (Version 2)
Quarter: 2013Q2

REPORT INFORMATION
  Report Type: Spontaneous
  Country: AU (occurrence: AU)
  Receive Date: 20130410
  Receipt Date: 20130610
  Transmission Date: 20140414
  Serious: Yes (Other)
  Sender: FDA-Public Use
  Company Number: AU-009507513-1304AUS001246

PATIENT
  Age: 41 Year
  Sex: Male
  Weight: 76 kg

DRUGS (3)
  1. PROSCAR [Suspect]
     Indication: ALOPECIA
     Dosage: 1/4 TABLET, QD
     Route: 048
     Dates: start: 20130209, end: 20130402
  2. PROSCAR [Suspect]
     Indication: HAIR DISORDER
  3. AROPAX [Concomitant]
     Indication: DEPRESSION
     Dosage: 20 MG DAILY: A WEEK OF ADMINISTRATION
     Route: 048

REACTIONS (6)
  - Anxiety [Recovered/Resolved]
  - Depression [Recovered/Resolved]
  - Incorrect dose administered [Unknown]
  - Dizziness [Not Recovered/Not Resolved]
  - Lethargy [Not Recovered/Not Resolved]
  - Intentional drug misuse [Unknown]
